FAERS Safety Report 17273899 (Version 2)
Quarter: 2020Q1

REPORT INFORMATION
  Report Type: Report from Study
  Country: US (occurrence: US)
  Receive Date: 20200115
  Receipt Date: 20200127
  Transmission Date: 20200409
  Serious: Yes (Hospitalization)
  Sender: FDA-Public Use
  Company Number: US-ACTELION-A-NJ2019-198275

PATIENT
  Age: 1 Year
  Sex: Female

DRUGS (5)
  1. SILDENAFIL. [Concomitant]
     Active Substance: SILDENAFIL
     Dosage: 15 MG, Q6HRS
     Dates: start: 20190612
  2. OMEPRAZOLE. [Concomitant]
     Active Substance: OMEPRAZOLE
     Dosage: 7 MG, BID
     Dates: start: 20190628
  3. LASIX [Concomitant]
     Active Substance: FUROSEMIDE
     Dosage: 8 MG, BID
     Dates: start: 20190627
  4. LASIX [Concomitant]
     Active Substance: FUROSEMIDE
     Dosage: 10 MG, BID
     Dates: start: 20181014
  5. TRACLEER [Suspect]
     Active Substance: BOSENTAN
     Indication: PULMONARY HYPERTENSION
     Dosage: 16 MG, BID
     Route: 048
     Dates: start: 20191028

REACTIONS (6)
  - Respiratory failure [Not Recovered/Not Resolved]
  - Bronchiolitis [Unknown]
  - Respiratory distress [Unknown]
  - Acute respiratory distress syndrome [Unknown]
  - Rhinovirus infection [Not Recovered/Not Resolved]
  - Metapneumovirus infection [Not Recovered/Not Resolved]

NARRATIVE: CASE EVENT DATE: 20191114
